FAERS Safety Report 16730168 (Version 1)
Quarter: 2019Q3

REPORT INFORMATION
  Report Type: Spontaneous
  Country: CN (occurrence: CN)
  Receive Date: 20190822
  Receipt Date: 20190822
  Transmission Date: 20191005
  Serious: Yes (Death, Hospitalization)
  Sender: FDA-Public Use
  Company Number: CN-PFIZER INC-2019353176

PATIENT
  Age: 53 Year
  Sex: Female

DRUGS (3)
  1. METHYLPREDNISOLONE. [Suspect]
     Active Substance: METHYLPREDNISOLONE
     Indication: RENAL VASCULITIS
     Dosage: 40 MG, DAILY
     Route: 048
  2. METHYLPREDNISOLONE SODIUM SUCCINATE. [Suspect]
     Active Substance: METHYLPREDNISOLONE SODIUM SUCCINATE
     Dosage: 40 MG, UNK
     Route: 042
  3. METHYLPREDNISOLONE SODIUM SUCCINATE. [Suspect]
     Active Substance: METHYLPREDNISOLONE SODIUM SUCCINATE
     Indication: RENAL VASCULITIS
     Dosage: 320 MG, UNK (THREE CONSECUTIVE DAYS)
     Route: 042

REACTIONS (3)
  - Lung infection [Fatal]
  - Brain abscess [Fatal]
  - Nocardiosis [Fatal]
